FAERS Safety Report 13688648 (Version 1)
Quarter: 2017Q2

REPORT INFORMATION
  Report Type: Spontaneous
  Country: US (occurrence: US)
  Receive Date: 20170623
  Receipt Date: 20170623
  Transmission Date: 20170830
  Serious: Yes (Disabling)
  Sender: FDA-Public Use
  Company Number: None

PATIENT
  Age: 32 Year
  Sex: Male
  Weight: 83.25 kg

DRUGS (1)
  1. CLONAZEPAM. [Suspect]
     Active Substance: CLONAZEPAM
     Indication: ANXIETY

REACTIONS (5)
  - Impaired quality of life [None]
  - Mental impairment [None]
  - Depression [None]
  - Mood swings [None]
  - Drug use disorder [None]

NARRATIVE: CASE EVENT DATE: 20140312
